FAERS Safety Report 4845513-3 (Version None)
Quarter: 2005Q4

REPORT INFORMATION
  Report Type: 
  Country: None (occurrence: None)
  Receive Date: 20051201
  Receipt Date: 20051129
  Transmission Date: 20060501
  Serious: Yes (Other)
  Sender: FDA-Public Use
  Company Number: 217475

PATIENT
  Age: 44 Year
  Sex: Male

DRUGS (7)
  1. XOLAIR [Suspect]
     Indication: DRUG USE FOR UNKNOWN INDICATION
     Dosage: 375 MG, Q2W, SUBCUTANEOUS
     Route: 058
     Dates: start: 20050315, end: 20050812
  2. ALBUTEROL [Concomitant]
  3. FORADIL [Concomitant]
  4. FLOVENT [Concomitant]
  5. ALLEGRA [Concomitant]
  6. SINGULAIR [Concomitant]
  7. PRILOSEC [Concomitant]

REACTIONS (3)
  - BLOOD BLISTER [None]
  - NASAL ULCER [None]
  - ORAL MUCOSAL BLISTERING [None]
